FAERS Safety Report 11116401 (Version 1)
Quarter: 2015Q2

REPORT INFORMATION
  Report Type: Spontaneous
  Country: None (occurrence: None)
  Receive Date: 20150514
  Receipt Date: 20150514
  Transmission Date: 20150821
  Serious: No
  Sender: FDA-Public Use
  Company Number: None

PATIENT
  Age: 27 Year
  Sex: Female
  Weight: 65.77 kg

DRUGS (16)
  1. RANITIDINE [Concomitant]
     Active Substance: RANITIDINE\RANITIDINE HYDROCHLORIDE
  2. PRESERVISION AREDS [Concomitant]
  3. NEUPRO [Suspect]
     Active Substance: ROTIGOTINE
     Indication: RESTLESS LEGS SYNDROME
     Dosage: 2MG/24HR?30 PATCHES?DAILY?ON THE SKIN
     Route: 061
     Dates: start: 20140902, end: 20150302
  4. HEARING AIDS [Concomitant]
  5. CARBIDOPA/LEVODOPA [Concomitant]
     Active Substance: CARBIDOPA\LEVODOPA
  6. OXYBUTYNIN [Concomitant]
     Active Substance: OXYBUTYNIN
  7. OMEGA XL [Concomitant]
     Active Substance: DIETARY SUPPLEMENT
  8. CANE [Concomitant]
  9. PYRIDOSTIGMINE [Concomitant]
     Active Substance: PYRIDOSTIGMINE
  10. SIMVASTATIN. [Concomitant]
     Active Substance: SIMVASTATIN
  11. EXTRA STRENGTH EXCEDRIN [Concomitant]
  12. NEUPRO [Suspect]
     Active Substance: ROTIGOTINE
     Indication: MYOCLONUS
     Dosage: 2MG/24HR?30 PATCHES?DAILY?ON THE SKIN
     Route: 061
     Dates: start: 20140902, end: 20150302
  13. NEU-PX-TF [Concomitant]
  14. CLINDAMYCIN [Concomitant]
     Active Substance: CLINDAMYCIN\CLINDAMYCIN PHOSPHATE
  15. CALCIUM 500 MG + VIT D [Concomitant]
  16. VIT D-3 [Concomitant]

REACTIONS (2)
  - Application site erythema [None]
  - Application site pruritus [None]

NARRATIVE: CASE EVENT DATE: 20150216
